FAERS Safety Report 23398002 (Version 2)
Quarter: 2024Q1

REPORT INFORMATION
  Report Type: Spontaneous
  Country: US (occurrence: US)
  Receive Date: 20240112
  Receipt Date: 20240319
  Transmission Date: 20240410
  Serious: Yes (Other)
  Sender: FDA-Public Use
  Company Number: US-MARINUS PHARMACEUTICALS, INC.-MAR2024000003

PATIENT

DRUGS (4)
  1. ZTALMY [Suspect]
     Active Substance: GANAXOLONE
     Indication: Seizure
     Dosage: 9 MILLILITER, TID
     Route: 048
     Dates: start: 20231230, end: 20240106
  2. ZTALMY [Suspect]
     Active Substance: GANAXOLONE
     Dosage: 3 MILLILITER, TID
     Route: 048
     Dates: start: 20231214, end: 20231221
  3. ZTALMY [Suspect]
     Active Substance: GANAXOLONE
     Dosage: 6 MILLILITER, TID
     Route: 048
     Dates: start: 20231222, end: 20231229
  4. ZTALMY [Suspect]
     Active Substance: GANAXOLONE
     Dosage: 12 MILLILITER, TID
     Route: 048
     Dates: start: 20240107

REACTIONS (2)
  - Surgery [Unknown]
  - Product dose omission issue [Unknown]
